FAERS Safety Report 25344298 (Version 1)
Quarter: 2025Q2

REPORT INFORMATION
  Report Type: Report from Study
  Country: US (occurrence: US)
  Receive Date: 20250521
  Receipt Date: 20250521
  Transmission Date: 20250717
  Serious: Yes (Other)
  Sender: ABBVIE
  Company Number: US-ABBVIE-6282953

PATIENT
  Age: 66 Year
  Sex: Female

DRUGS (1)
  1. HUMIRA [Suspect]
     Active Substance: ADALIMUMAB
     Indication: Product used for unknown indication
     Route: 058
     Dates: start: 20170309

REACTIONS (4)
  - Pulmonary thrombosis [Unknown]
  - Immune thrombocytopenia [Unknown]
  - Vein collapse [Unknown]
  - Multiple allergies [Unknown]

NARRATIVE: CASE EVENT DATE: 20250201
